FAERS Safety Report 4387947-X (Version None)
Quarter: 2004Q2

REPORT INFORMATION
  Report Type: 
  Country: None (occurrence: None)
  Receive Date: 20040607
  Receipt Date: 20040115
  Transmission Date: 20050107
  Serious: Yes (Other)
  Sender: FDA-Public Use
  Company Number: 356315

PATIENT
  Age: 38 Year
  Sex: Male
  Weight: 81.6 kg

DRUGS (1)
  1. ACCUTANE [Suspect]
     Dosage: 2 PER DAY  ORAL
     Route: 048
     Dates: start: 20040109, end: 20040111

REACTIONS (2)
  - HYPERSENSITIVITY [None]
  - RASH [None]
